FAERS Safety Report 23194517 (Version 1)
Quarter: 2023Q4

REPORT INFORMATION
  Report Type: Spontaneous
  Country: PK (occurrence: PK)
  Receive Date: 20231117
  Receipt Date: 20231117
  Transmission Date: 20240110
  Serious: Yes (Other)
  Sender: FDA-Public Use
  Company Number: PK-PFIZER INC-PV202300051598

PATIENT
  Age: 37 Year
  Sex: Male
  Weight: 78 kg

DRUGS (9)
  1. ENBREL [Suspect]
     Active Substance: ETANERCEPT
     Indication: Arthritis
     Dosage: 50 MG, EVERY 4 WEEKS
     Route: 058
     Dates: start: 20230324
  2. ENBREL [Suspect]
     Active Substance: ETANERCEPT
     Indication: Ankylosing spondylitis
     Dosage: UNK UNK, UNK
     Route: 065
  3. CELBEXX [Concomitant]
     Dosage: 200MG 1X CAPSULE, AS NEEDED, AFTER MEAL, WHEN REQUIRED
  4. HYDROXYCHLOROQUINE SULFATE [Concomitant]
     Active Substance: HYDROXYCHLOROQUINE SULFATE
     Dosage: 200 MILLIGRAM, QD
  5. Teph [Concomitant]
     Indication: Dyspepsia
     Dosage: 20MG 1X TABLETS, AS NEEDED, BEFORE MEAL, WHEN REQUIRED
  6. FOLIC ACID [Concomitant]
     Active Substance: FOLIC ACID
     Dosage: 5MG TAB 1+0+0+0, AFTER MEAL, 1 TAB IN MORNING AFTER MEAL CONTINUE
  7. CAC [Concomitant]
     Dosage: ALL FLA TAB 10 0+1+0+0, 1 TAB IN AFTERNOON CONTINUE
  8. Sunny d [Concomitant]
     Dosage: CAP 1 X CAPSULE, ONCE IN TWO MONTHS CONTINUE
  9. SULFASALAZINE [Concomitant]
     Active Substance: SULFASALAZINE
     Dosage: 1 GM, DAILY

REACTIONS (2)
  - Off label use [Unknown]
  - Leukopenia [Unknown]

NARRATIVE: CASE EVENT DATE: 20230324
